FAERS Safety Report 8258578-6 (Version None)
Quarter: 2012Q2

REPORT INFORMATION
  Report Type: 
  Country: None (occurrence: None)
  Receive Date: 20120404
  Receipt Date: 20120327
  Transmission Date: 20120825
  Serious: Yes (Other)
  Sender: FDA-Public Use
  Company Number: US-BAYER-2011-096167

PATIENT
  Age: 40 Year
  Sex: Female
  Weight: 68.027 kg

DRUGS (13)
  1. XANAX [Concomitant]
     Indication: NERVOUSNESS
  2. PROZAC [Concomitant]
     Indication: NERVOUSNESS
  3. XANAX [Concomitant]
     Indication: FEAR OF DISEASE
  4. YASMIN [Suspect]
     Indication: PREMENSTRUAL SYNDROME
  5. XANAX [Concomitant]
     Indication: INSOMNIA
  6. PROZAC [Concomitant]
     Indication: PANIC ATTACK
     Dosage: 20 MG, UNK
     Route: 048
     Dates: start: 20000101, end: 20100101
  7. PROZAC [Concomitant]
     Indication: PREMENSTRUAL SYNDROME
  8. LOPERAMIDE [Concomitant]
     Indication: DIARRHOEA
     Dosage: 2 MG, UNK
     Route: 048
     Dates: start: 20060923
  9. YASMIN [Suspect]
     Indication: CONTRACEPTION
     Dosage: UNK
     Route: 048
     Dates: start: 20040901, end: 20080101
  10. XANAX [Concomitant]
     Indication: PANIC ATTACK
     Dosage: 0.25 MG, UNK
     Dates: start: 20000101, end: 20100101
  11. XANAX [Concomitant]
     Indication: PREMENSTRUAL SYNDROME
  12. DICYCLOMINE [Concomitant]
     Dosage: 20 MG, UNK
     Route: 048
     Dates: start: 20060928
  13. YASMIN [Suspect]
     Indication: MENORRHAGIA

REACTIONS (9)
  - SCAR [None]
  - MENTAL DISORDER [None]
  - CHOLECYSTITIS ACUTE [None]
  - GENERAL PHYSICAL HEALTH DETERIORATION [None]
  - INJURY [None]
  - GALLBLADDER INJURY [None]
  - ANXIETY [None]
  - PAIN [None]
  - EMOTIONAL DISTRESS [None]
